FAERS Safety Report 24625977 (Version 1)
Quarter: 2024Q4

REPORT INFORMATION
  Report Type: Spontaneous
  Country: US (occurrence: US)
  Receive Date: 20241115
  Receipt Date: 20241115
  Transmission Date: 20250114
  Serious: Yes (Other)
  Sender: TEVA
  Company Number: US-TEVA-VS-3263394

PATIENT
  Age: 24 Year
  Sex: Male

DRUGS (2)
  1. UZEDY [Suspect]
     Active Substance: RISPERIDONE
     Indication: Schizophrenia
     Dosage: 125/0.35MG/ML, INJECTABLE SUSPENSION
     Route: 065
     Dates: start: 20240906
  2. UZEDY [Suspect]
     Active Substance: RISPERIDONE
     Dosage: SECOND DOSE
     Route: 065
     Dates: start: 20241004

REACTIONS (5)
  - Hallucination, auditory [Unknown]
  - Depressed mood [Unknown]
  - Imprisonment [Not Recovered/Not Resolved]
  - Soliloquy [Unknown]
  - Physical assault [Unknown]

NARRATIVE: CASE EVENT DATE: 20240101
